FAERS Safety Report 8450142 (Version 2)
Quarter: 2013Q1

REPORT INFORMATION
  Report Type: Spontaneous
  Country: US (occurrence: US)
  Receive Date: 20120309
  Receipt Date: 20130125
  Transmission Date: 20140127
  Serious: Yes (Life-Threatening, Hospitalization, Other)
  Sender: FDA-Public Use
  Company Number: US-BAYER-2012-021623

PATIENT
  Age: 16 Year
  Sex: Female

DRUGS (5)
  1. YAZ [Suspect]
  2. YASMIN [Suspect]
  3. OCELLA [Suspect]
  4. IBUPROFEN [Concomitant]
  5. TRETINOIN [Concomitant]
     Dosage: 0.5 %, APLY TO DRY FACE EVERY NIGHT
     Route: 061

REACTIONS (9)
  - Deep vein thrombosis [None]
  - Pelvic venous thrombosis [None]
  - Thrombophlebitis superficial [None]
  - Deep vein thrombosis [None]
  - Thrombophlebitis superficial [None]
  - Pain [None]
  - General physical health deterioration [None]
  - Anxiety [None]
  - Anhedonia [None]
